FAERS Safety Report 6197231-X (Version None)
Quarter: 2009Q2

REPORT INFORMATION
  Report Type: 
  Country: None (occurrence: None)
  Receive Date: 20090521
  Receipt Date: 20080501
  Transmission Date: 20091009
  Serious: Yes (Other)
  Sender: FDA-Public Use
  Company Number: US-ASTRAZENECA-2007UW21497

PATIENT
  Age: 21211 Day
  Sex: Female
  Weight: 84.4 kg

DRUGS (19)
  1. SEROQUEL [Suspect]
     Indication: ANXIETY
     Dosage: 75 MG TO 200 MG
     Route: 048
     Dates: start: 20050301
  2. SEROQUEL [Suspect]
     Indication: DEPRESSION
     Dosage: 75 MG TO 200 MG
     Route: 048
     Dates: start: 20050301
  3. SEROQUEL [Suspect]
     Indication: BIPOLAR DISORDER
     Dosage: 75 MG TO 200 MG
     Route: 048
     Dates: start: 20050301
  4. SEROQUEL [Suspect]
     Indication: SLEEP DISORDER
     Dosage: 75 MG TO 200 MG
     Route: 048
     Dates: start: 20050301
  5. SEROQUEL [Suspect]
     Dosage: 25- 200 MG
     Route: 048
     Dates: start: 20050817
  6. SEROQUEL [Suspect]
     Dosage: 25- 200 MG
     Route: 048
     Dates: start: 20050817
  7. SEROQUEL [Suspect]
     Dosage: 25- 200 MG
     Route: 048
     Dates: start: 20050817
  8. SEROQUEL [Suspect]
     Dosage: 25- 200 MG
     Route: 048
     Dates: start: 20050817
  9. LEXAPRO [Concomitant]
     Dosage: 20MG-30MG
     Route: 048
  10. LAMICTAL [Concomitant]
     Dosage: 50MG-200MG DAILY
     Route: 048
  11. CAMPRAL [Concomitant]
     Dosage: 333MG-1998MG DAILY
     Route: 048
  12. PREMARIN [Concomitant]
     Dosage: 0.3MG-2.5MG
     Route: 048
  13. CRESTOR [Concomitant]
     Route: 048
  14. PRINIVIL [Concomitant]
     Indication: ESSENTIAL HYPERTENSION
     Route: 048
  15. LIBRIUM [Concomitant]
     Dosage: 10MG-30MG DAILY
     Route: 048
  16. THIAMINE HCL [Concomitant]
     Route: 048
  17. FOLIC ACID [Concomitant]
     Route: 048
  18. FLAGYL [Concomitant]
     Indication: VAGINITIS BACTERIAL
     Dosage: 500MG-2000MG
     Route: 048
  19. LOTENSIN [Concomitant]
     Route: 048

REACTIONS (10)
  - ARTHRALGIA [None]
  - BIPOLAR DISORDER [None]
  - BREAST MASS [None]
  - CARPAL TUNNEL SYNDROME [None]
  - DIABETES MELLITUS [None]
  - FOREARM FRACTURE [None]
  - HYPERLIPIDAEMIA [None]
  - JOINT EFFUSION [None]
  - POST-TRAUMATIC STRESS DISORDER [None]
  - SYNOVITIS [None]
